FAERS Safety Report 8543181-0 (Version None)
Quarter: 2012Q3

REPORT INFORMATION
  Report Type: 
  Country: None (occurrence: None)
  Receive Date: 20120727
  Receipt Date: 20120717
  Transmission Date: 20120928
  Serious: Yes (Other)
  Sender: FDA-Public Use
  Company Number: JP-CELGENEUS-087-50794-12062857

PATIENT
  Sex: Male
  Weight: 58 kg

DRUGS (26)
  1. VIDAZA [Suspect]
     Dosage: 75 MILLIGRAM/SQ. METER
     Route: 058
     Dates: start: 20111219, end: 20111228
  2. MUCOSTA [Concomitant]
     Route: 065
     Dates: start: 20110823, end: 20111012
  3. ASPIRIN [Concomitant]
     Route: 065
     Dates: start: 20110824, end: 20110906
  4. LIPITOR [Concomitant]
     Route: 065
     Dates: start: 20110824, end: 20111012
  5. VIDAZA [Suspect]
     Dosage: 75 MILLIGRAM/SQ. METER
     Route: 058
     Dates: start: 20110824, end: 20110830
  6. AZUNOL GARGLE [Concomitant]
     Route: 065
     Dates: start: 20110925
  7. FAMOTIDINE D [Concomitant]
     Route: 065
     Dates: start: 20110824, end: 20110909
  8. VERAPAMIL HCL [Concomitant]
     Route: 065
     Dates: start: 20110830, end: 20110830
  9. AMARYL [Concomitant]
     Route: 065
     Dates: start: 20110824, end: 20111012
  10. VIDAZA [Suspect]
     Dosage: 75 MILLIGRAM/SQ. METER
     Route: 058
     Dates: start: 20111121, end: 20111130
  11. RIZE [Concomitant]
     Route: 065
     Dates: start: 20110824, end: 20111012
  12. HEPAFLUSH [Concomitant]
     Route: 065
     Dates: start: 20110823, end: 20110921
  13. KYTRIL [Concomitant]
     Route: 065
     Dates: start: 20110927, end: 20111003
  14. DIGOXIN [Concomitant]
     Route: 065
     Dates: start: 20110830, end: 20110830
  15. VIDAZA [Suspect]
     Dosage: 75 MILLIGRAM/SQ. METER
     Route: 058
     Dates: start: 20120116, end: 20120124
  16. KYTRIL [Concomitant]
     Route: 065
     Dates: start: 20110830, end: 20110901
  17. VIDAZA [Suspect]
     Dosage: 75 MILLIGRAM/SQ. METER
     Route: 058
     Dates: start: 20110927, end: 20111003
  18. KETOPROFEN [Concomitant]
     Route: 065
     Dates: start: 20110921
  19. MAGMITT [Concomitant]
     Route: 065
     Dates: start: 20110826, end: 20111012
  20. ISOSORBIDE MONONITRATE [Concomitant]
     Route: 065
     Dates: start: 20110824, end: 20111012
  21. CIBENOL [Concomitant]
     Route: 065
     Dates: start: 20110824, end: 20111012
  22. VIDAZA [Suspect]
     Dosage: 75 MILLIGRAM/SQ. METER
     Route: 058
     Dates: start: 20111024, end: 20111101
  23. GLAKAY [Concomitant]
     Route: 065
     Dates: start: 20110823, end: 20111012
  24. CHLOR-TRIMETON [Concomitant]
     Route: 065
     Dates: start: 20110823, end: 20110920
  25. PURSENNID [Concomitant]
     Route: 065
     Dates: start: 20110921, end: 20110926
  26. MICARDIS [Concomitant]
     Route: 065
     Dates: start: 20110824, end: 20111012

REACTIONS (1)
  - TACHYCARDIA [None]
